FAERS Safety Report 25512878 (Version 3)
Quarter: 2025Q3

REPORT INFORMATION
  Report Type: Spontaneous
  Country: US (occurrence: US)
  Receive Date: 20250703
  Receipt Date: 20250708
  Transmission Date: 20251021
  Serious: Yes (Hospitalization, Other)
  Sender: NOVARTIS
  Company Number: US-002147023-NVSC2025US104484

PATIENT
  Sex: Female

DRUGS (4)
  1. ZOLEDRONIC ACID [Suspect]
     Active Substance: ZOLEDRONIC ACID
     Indication: Hormone receptor positive HER2 negative breast cancer
     Route: 042
  2. ABEMACICLIB [Concomitant]
     Active Substance: ABEMACICLIB
     Indication: Hormone receptor positive HER2 negative breast cancer
     Route: 065
  3. ABEMACICLIB [Concomitant]
     Active Substance: ABEMACICLIB
     Indication: Metastases to spine
  4. CALCIUM CHLORIDE\POTASSIUM CHLORIDE\SODIUM LACTATE [Concomitant]
     Active Substance: CALCIUM CHLORIDE\POTASSIUM CHLORIDE\SODIUM LACTATE
     Indication: Product used for unknown indication
     Route: 065

REACTIONS (3)
  - Renal tubular necrosis [Recovered/Resolved]
  - Acute kidney injury [Recovering/Resolving]
  - Blood creatinine increased [Recovered/Resolved]
